FAERS Safety Report 23136486 (Version 3)
Quarter: 2023Q4

REPORT INFORMATION
  Report Type: Spontaneous
  Country: ES (occurrence: ES)
  Receive Date: 20231102
  Receipt Date: 20231127
  Transmission Date: 20240109
  Serious: Yes (Other)
  Sender: FDA-Public Use
  Company Number: ES-UCBSA-2023050699

PATIENT
  Age: 5 Year
  Sex: Male

DRUGS (4)
  1. LEVETIRACETAM [Suspect]
     Active Substance: LEVETIRACETAM
     Indication: Lennox-Gastaut syndrome
     Dosage: UNK
     Route: 065
  2. VALPROIC ACID [Suspect]
     Active Substance: VALPROIC ACID
     Indication: Lennox-Gastaut syndrome
     Dosage: 46 MILLIGRAM/KILOGRAM, ONCE A DAY
     Route: 065
  3. VALPROIC ACID [Suspect]
     Active Substance: VALPROIC ACID
     Dosage: REDUCED
     Route: 065
  4. CLOBAZAM [Suspect]
     Active Substance: CLOBAZAM
     Indication: Lennox-Gastaut syndrome
     Dosage: UNK
     Route: 065

REACTIONS (16)
  - Cerebellar atrophy [Recovering/Resolving]
  - Generalised tonic-clonic seizure [Recovered/Resolved]
  - Epilepsy [Recovered/Resolved]
  - Condition aggravated [Recovered/Resolved]
  - Ataxia [Recovered/Resolved]
  - Akathisia [Recovered/Resolved]
  - Cognitive disorder [Recovered/Resolved]
  - Dysarthria [Recovered/Resolved]
  - Disturbance in attention [Unknown]
  - Hyperphagia [Recovered/Resolved]
  - Irritability [Recovered/Resolved]
  - Impulsive behaviour [Recovered/Resolved]
  - Behaviour disorder [Recovering/Resolving]
  - Motor dysfunction [Recovering/Resolving]
  - Somnolence [Recovered/Resolved]
  - Off label use [Unknown]
